FAERS Safety Report 8301258-9 (Version None)
Quarter: 2012Q2

REPORT INFORMATION
  Report Type: 
  Country: None (occurrence: None)
  Receive Date: 20120420
  Receipt Date: 20120420
  Transmission Date: 20120825
  Serious: Yes (Death)
  Sender: FDA-Public Use
  Company Number: None

PATIENT
  Age: 72 Year
  Sex: Female
  Weight: 54.431 kg

DRUGS (1)
  1. PRADAXA [Suspect]
     Indication: ATRIAL FIBRILLATION
     Dates: start: 20110711, end: 20110720

REACTIONS (7)
  - ASPIRATION [None]
  - CARDIO-RESPIRATORY ARREST [None]
  - FALL [None]
  - NAUSEA [None]
  - CHROMATURIA [None]
  - COAGULOPATHY [None]
  - BLOOD PRESSURE DECREASED [None]
